FAERS Safety Report 23834441 (Version 1)
Quarter: 2024Q2

REPORT INFORMATION
  Report Type: Spontaneous
  Country: US (occurrence: US)
  Receive Date: 20240509
  Receipt Date: 20240509
  Transmission Date: 20240715
  Serious: Yes (Hospitalization)
  Sender: FDA-Public Use
  Company Number: US-JNJFOC-20240485463

PATIENT
  Age: 84 Year
  Sex: Female
  Weight: 51.7 kg

DRUGS (24)
  1. OPSUMIT [Suspect]
     Active Substance: MACITENTAN
     Indication: Product used for unknown indication
     Route: 048
  2. TYVASO DPI [Suspect]
     Active Substance: TREPROSTINIL
     Indication: Pulmonary arterial hypertension
     Route: 055
     Dates: start: 20230707
  3. TADALAFIL [Suspect]
     Active Substance: TADALAFIL
     Indication: Product used for unknown indication
     Route: 065
  4. ELIQUIS [Concomitant]
     Active Substance: APIXABAN
  5. BIFIDOBACTERIUM ANIMALIS LACTIS [Concomitant]
     Active Substance: BIFIDOBACTERIUM ANIMALIS LACTIS
  6. HYDROXYUREA [Concomitant]
     Active Substance: HYDROXYUREA
  7. VITAMIN D3 [Concomitant]
     Active Substance: CHOLECALCIFEROL
  8. SELENIUM [Concomitant]
     Active Substance: SELENIUM
  9. METOPROLOL TARTRATE [Concomitant]
     Active Substance: METOPROLOL TARTRATE
  10. AUGMENTIN [Concomitant]
     Active Substance: AMOXICILLIN\CLAVULANATE POTASSIUM
  11. OXYGEN [Concomitant]
     Active Substance: OXYGEN
  12. ANORO ELLIPTA [Concomitant]
     Active Substance: UMECLIDINIUM BROMIDE\VILANTEROL TRIFENATATE
  13. FOLIC ACID [Concomitant]
     Active Substance: FOLIC ACID
  14. VITAMINS [Concomitant]
     Active Substance: VITAMINS
  15. LYSINE [Concomitant]
     Active Substance: LYSINE
  16. DEFERASIROX [Concomitant]
     Active Substance: DEFERASIROX
  17. FUROSEMIDE [Concomitant]
     Active Substance: FUROSEMIDE
  18. COUMADIN [Concomitant]
     Active Substance: WARFARIN SODIUM
  19. BENADRYL [Concomitant]
     Active Substance: DIPHENHYDRAMINE HYDROCHLORIDE
  20. EXJADE [Concomitant]
     Active Substance: DEFERASIROX
  21. ASPIRIN [Concomitant]
     Active Substance: ASPIRIN
  22. OCUVITE [ASCORBIC ACID;RETINOL;TOCOPHEROL] [Concomitant]
  23. CALCIUM [Concomitant]
     Active Substance: CALCIUM
  24. LACTOBACILLUS ACIDOPHILUS [Concomitant]
     Active Substance: LACTOBACILLUS ACIDOPHILUS

REACTIONS (4)
  - Hip fracture [Not Recovered/Not Resolved]
  - Fall [Recovered/Resolved with Sequelae]
  - Lower limb fracture [Not Recovered/Not Resolved]
  - Headache [Unknown]

NARRATIVE: CASE EVENT DATE: 20230101
